FAERS Safety Report 20531965 (Version 9)
Quarter: 2023Q1

REPORT INFORMATION
  Report Type: Spontaneous
  Country: CA (occurrence: CA)
  Receive Date: 20220301
  Receipt Date: 20230111
  Transmission Date: 20230417
  Serious: Yes (Other)
  Sender: FDA-Public Use
  Company Number: CA-PFIZER INC-2020050358

PATIENT
  Age: 60 Year
  Sex: Female
  Weight: 71 kg

DRUGS (17)
  1. IBRANCE [Suspect]
     Active Substance: PALBOCICLIB
     Indication: Breast cancer metastatic
     Dosage: 125 MG, CYCLIC (DAILY FOR 21 DAYS OFF 7 DAYS)
     Route: 048
     Dates: start: 20200227, end: 2020
  2. IBRANCE [Suspect]
     Active Substance: PALBOCICLIB
     Dosage: 100 MG, CYCLIC (DAILY FOR 21 DAYS OFF 7 DAYS)
     Route: 048
     Dates: start: 2020, end: 2020
  3. IBRANCE [Suspect]
     Active Substance: PALBOCICLIB
     Dosage: 75 MG, CYCLIC (DAILY FOR 21 DAYS OFF 7 DAYS, TAKE WITH FOOD)
     Route: 048
     Dates: start: 20210212
  4. IBRANCE [Suspect]
     Active Substance: PALBOCICLIB
     Dosage: 75 MG, CYCLIC, DAILY X 21 DAYS OFF 14 DAYS
     Route: 048
     Dates: start: 20210728
  5. IBRANCE [Suspect]
     Active Substance: PALBOCICLIB
     Dosage: 75 MG, CYCLIC, DAILY X 21 DAYS FOLLOWED BY 7 DAYS OFF
     Route: 048
     Dates: start: 20211006
  6. IBRANCE [Suspect]
     Active Substance: PALBOCICLIB
     Dosage: 75 MG, CYCLIC, DAILY X 21 DAYS FOLLOWED BY 7 DAYS OFF
     Route: 048
     Dates: start: 202111
  7. IBRANCE [Suspect]
     Active Substance: PALBOCICLIB
     Dosage: 75MG, CYCLIC,  X 21 DAYS; THEN OFF FOR 21
     Route: 048
     Dates: start: 20220201, end: 20220201
  8. IBRANCE [Suspect]
     Active Substance: PALBOCICLIB
     Dosage: 75 MG, CYCLIC, DAILY FOR 21 DAYS, THEN STOP FOR 7 DAYS
     Route: 048
     Dates: start: 20220216
  9. IBRANCE [Suspect]
     Active Substance: PALBOCICLIB
     Dosage: 75 MG, CYCLIC,  PO QD X 21 DAYS ON/ 7 DAYS OFF
     Route: 048
     Dates: start: 20220323
  10. IBRANCE [Suspect]
     Active Substance: PALBOCICLIB
     Dosage: 75 MG CYCLIC, PO QD X 21 DAYS ON/ 14 DAYS OFF
     Route: 048
  11. IBRANCE [Suspect]
     Active Substance: PALBOCICLIB
     Dosage: 75 MG, CYCLIC, 1X/DAY FOR 21 DAYS, THEN STOP FOR 14 DAYS
     Route: 048
  12. IBRANCE [Suspect]
     Active Substance: PALBOCICLIB
     Dosage: 75 MG, CYCLIC, 1X/DAY FOR 21 DAYS, THEN STOP FOR 7 DAYS
     Route: 048
  13. LETROZOLE [Concomitant]
     Active Substance: LETROZOLE
     Dosage: 2.5 MG, DAILY
     Route: 048
  14. LETROZOLE [Concomitant]
     Active Substance: LETROZOLE
     Dosage: UNK, CYCLE DAY 1, CYCLE 24
  15. LETROZOLE [Concomitant]
     Active Substance: LETROZOLE
     Dosage: UNK, CYCLE DAY 1, CYCLE 25
  16. LETROZOLE [Concomitant]
     Active Substance: LETROZOLE
     Dosage: UNK, DAY 1, CYCLE 27
  17. LETROZOLE [Concomitant]
     Active Substance: LETROZOLE
     Dosage: 2.5 MG TABLET BY MOUTH DAILY (CYCLE: DAY 1, CYCLE 28)
     Route: 048

REACTIONS (15)
  - Aortic arteriosclerosis [Unknown]
  - Off label use [Unknown]
  - Product use issue [Unknown]
  - Atelectasis [Unknown]
  - Alanine aminotransferase increased [Unknown]
  - Aspartate aminotransferase increased [Unknown]
  - Body surface area increased [Unknown]
  - Body surface area decreased [Unknown]
  - Diverticulum [Unknown]
  - Full blood count abnormal [Unknown]
  - Hepatic lesion [Unknown]
  - Hepatic steatosis [Unknown]
  - Neutrophil count decreased [Recovering/Resolving]
  - Neoplasm progression [Not Recovered/Not Resolved]
  - Weight fluctuation [Unknown]

NARRATIVE: CASE EVENT DATE: 20200101
